FAERS Safety Report 23029562 (Version 1)
Quarter: 2023Q4

REPORT INFORMATION
  Report Type: Spontaneous
  Country: US (occurrence: US)
  Receive Date: 20231004
  Receipt Date: 20231004
  Transmission Date: 20240110
  Serious: No
  Sender: FDA-Public Use
  Company Number: US-GE HEALTHCARE-2023CSU005923

PATIENT

DRUGS (4)
  1. OPTISON [Suspect]
     Active Substance: HUMAN ALBUMIN MICROSPHERES\PERFLUTREN
     Indication: Radioembolisation
     Dosage: 5 ML, SINGLE
     Route: 065
  2. OPTISON [Suspect]
     Active Substance: HUMAN ALBUMIN MICROSPHERES\PERFLUTREN
     Indication: Ultrasound scan
  3. OPTISON [Suspect]
     Active Substance: HUMAN ALBUMIN MICROSPHERES\PERFLUTREN
     Indication: Hepatocellular carcinoma
  4. SALINE [Concomitant]
     Active Substance: SODIUM CHLORIDE
     Dosage: 50 MG

REACTIONS (2)
  - Rash [Recovered/Resolved]
  - Off label use [Recovered/Resolved]
